FAERS Safety Report 15011342 (Version 1)
Quarter: 2018Q2

REPORT INFORMATION
  Report Type: Spontaneous
  Country: US (occurrence: US)
  Receive Date: 20180614
  Receipt Date: 20180614
  Transmission Date: 20180711
  Serious: Yes (Other)
  Sender: FDA-Public Use
  Company Number: US-INFO-000638

PATIENT
  Age: 29 Year
  Sex: Female
  Weight: 64.5 kg

DRUGS (6)
  1. FLAGYL [Concomitant]
     Active Substance: METRONIDAZOLE\METRONIDAZOLE HYDROCHLORIDE
     Route: 065
  2. GABAPENTIN. [Concomitant]
     Active Substance: GABAPENTIN
     Route: 065
  3. MOBIC [Concomitant]
     Active Substance: MELOXICAM
     Route: 065
  4. TOPAMAX [Concomitant]
     Active Substance: TOPIRAMATE
     Route: 065
  5. CIPROFLOXACIN 400MG/200ML 5% DEXTROSE [Suspect]
     Active Substance: CIPROFLOXACIN
     Dosage: 400MG/200ML IV
     Route: 042
     Dates: start: 20180328
  6. NICOTINE. [Concomitant]
     Active Substance: NICOTINE
     Route: 065

REACTIONS (3)
  - Injection site erythema [Unknown]
  - Injection site pruritus [Unknown]
  - Dizziness [Unknown]

NARRATIVE: CASE EVENT DATE: 20180328
